FAERS Safety Report 15707015 (Version 1)
Quarter: 2018Q4

REPORT INFORMATION
  Report Type: Spontaneous
  Country: US (occurrence: US)
  Receive Date: 20181210
  Receipt Date: 20181210
  Transmission Date: 20190205
  Serious: No
  Sender: FDA-Public Use
  Company Number: PHEH2018US051695

PATIENT

DRUGS (1)
  1. LATANOPROST. [Suspect]
     Active Substance: LATANOPROST
     Indication: PRODUCT USED FOR UNKNOWN INDICATION
     Dosage: QD (AT NIGHT)
     Route: 047

REACTIONS (5)
  - Pruritus generalised [Unknown]
  - Skin disorder [Unknown]
  - Paraesthesia [Unknown]
  - Feeling hot [Unknown]
  - Sleep disorder [Unknown]
